FAERS Safety Report 20809478 (Version 2)
Quarter: 2022Q3

REPORT INFORMATION
  Report Type: Spontaneous
  Country: US (occurrence: US)
  Receive Date: 20220510
  Receipt Date: 20220726
  Transmission Date: 20221027
  Serious: No
  Sender: FDA-Public Use
  Company Number: US-OYSTER POINT PHARMA, INC.-2022OYS00340

PATIENT
  Age: 66 Year
  Sex: Female

DRUGS (10)
  1. TYRVAYA [Suspect]
     Active Substance: VARENICLINE TARTRATE
     Indication: Dry eye
     Dosage: 1 SPRAY, 2X/DAY
     Route: 045
     Dates: start: 20220325, end: 202203
  2. ACIPHEX [Concomitant]
     Active Substance: RABEPRAZOLE SODIUM
  3. ADVAIR HFA [Concomitant]
     Active Substance: FLUTICASONE PROPIONATE\SALMETEROL XINAFOATE
  4. CBD (CANNABIDIOL) [Concomitant]
  5. COMBIVENT [Concomitant]
     Active Substance: ALBUTEROL SULFATE\IPRATROPIUM BROMIDE
  6. HYALURONIC ACID [Concomitant]
     Active Substance: HYALURONIC ACID
  7. LORATADINE [Concomitant]
     Active Substance: LORATADINE
  8. PROTOPIC [Concomitant]
     Active Substance: TACROLIMUS
  9. SINGULAIR [Concomitant]
     Active Substance: MONTELUKAST SODIUM
  10. HYDROCHLOROTHIAZIDE\TRIAMTERENE [Concomitant]
     Active Substance: HYDROCHLOROTHIAZIDE\TRIAMTERENE

REACTIONS (4)
  - Dizziness [Recovered/Resolved]
  - Vertigo [Recovered/Resolved]
  - Ear pruritus [Recovered/Resolved]
  - Headache [Recovered/Resolved]

NARRATIVE: CASE EVENT DATE: 20220328
